FAERS Safety Report 18781570 (Version 1)
Quarter: 2021Q1

REPORT INFORMATION
  Report Type: Spontaneous
  Country: US (occurrence: US)
  Receive Date: 20210124
  Receipt Date: 20210124
  Transmission Date: 20210419
  Serious: Yes (Hospitalization)
  Sender: FDA-Public Use
  Company Number: None

PATIENT
  Age: 51 Year
  Sex: Male
  Weight: 188.24 kg

DRUGS (1)
  1. TORSEMIDE (TORSEMIDE 20MG TAB) [Suspect]
     Active Substance: TORSEMIDE
     Indication: CARDIAC FAILURE CONGESTIVE
     Route: 048
     Dates: start: 20200228

REACTIONS (2)
  - Fluid overload [None]
  - Cardiac failure congestive [None]

NARRATIVE: CASE EVENT DATE: 20200701
